FAERS Safety Report 5876282-6 (Version None)
Quarter: 2008Q3

REPORT INFORMATION
  Report Type: 
  Country: None (occurrence: None)
  Receive Date: 20080910
  Receipt Date: 20080825
  Transmission Date: 20090109
  Serious: Yes (Other)
  Sender: FDA-Public Use
  Company Number: US-BAYER-200813511BCC

PATIENT
  Age: 70 Year
  Sex: Female
  Weight: 48 kg

DRUGS (6)
  1. ASPIRIN [Suspect]
     Indication: HYPERTENSION
     Dosage: TOTAL DAILY DOSE: 81 MG  UNIT DOSE: 81 MG
     Dates: start: 20030101
  2. ONE-A-DAY WOMEN'S VITAMIN [Suspect]
     Indication: ROUTINE HEALTH MAINTENANCE
     Dosage: TOTAL DAILY DOSE: 1 DF
     Dates: start: 20050101
  3. SPIRIVA [Concomitant]
  4. FORADIL [Concomitant]
  5. NEXIUM [Concomitant]
     Dosage: TOTAL DAILY DOSE: 40 MG
  6. HYDROCHLOROTHIAZIDE [Concomitant]

REACTIONS (4)
  - CAROTID ARTERY OCCLUSION [None]
  - CHEST PAIN [None]
  - DEPRESSION [None]
  - FOREIGN BODY TRAUMA [None]
